FAERS Safety Report 9821064 (Version 2)
Quarter: 2014Q1

REPORT INFORMATION
  Report Type: Spontaneous
  Country: GB (occurrence: GB)
  Receive Date: 20140116
  Receipt Date: 20140318
  Transmission Date: 20141002
  Serious: Yes (Hospitalization)
  Sender: FDA-Public Use
  Company Number: GB-PFIZER INC-2014009539

PATIENT
  Age: 55 Year
  Sex: Female
  Weight: 56 kg

DRUGS (18)
  1. DEXAMETHASONE SODIUM PHOSPHATE [Suspect]
     Dosage: 4 MG, 1X/DAY
     Dates: start: 20130711, end: 20130719
  2. EXEMESTANE [Suspect]
     Indication: BREAST CANCER METASTATIC
     Dosage: 25 MG, 1X/DAY
     Route: 048
     Dates: start: 20130307, end: 20130710
  3. EXEMESTANE [Suspect]
     Route: 048
     Dates: start: 201203
  4. DICLOFENAC [Suspect]
     Dosage: 50 MG, 3X/DAY
     Dates: start: 20130711, end: 20130719
  5. AFINITOR [Suspect]
     Indication: BREAST CANCER METASTATIC
     Dosage: 10 MG, 1X/DAY
     Route: 048
     Dates: start: 20130307, end: 20130710
  6. FENTANYL [Concomitant]
     Indication: ANALGESIC THERAPY
     Dosage: OVER 72 HOURS
     Dates: start: 20130607
  7. FENTANYL [Concomitant]
     Dosage: OVER 72 HOURS
     Dates: start: 20130723
  8. PARACETAMOL [Concomitant]
     Indication: ANALGESIC THERAPY
     Dosage: 50 MG, 1X/DAY
     Route: 048
     Dates: start: 20130513
  9. PARACETAMOL [Concomitant]
     Route: 048
     Dates: start: 20130719
  10. VOLTAROL [Concomitant]
     Indication: ANALGESIC THERAPY
     Dosage: 50 MG, 3X/DAY
     Route: 048
  11. CYCLIZINE [Concomitant]
     Indication: ANTIEMETIC SUPPORTIVE CARE
     Dosage: AS NECESSARY
     Route: 048
     Dates: start: 20130313
  12. ORAMORPH [Concomitant]
     Indication: ANALGESIC THERAPY
     Dosage: AS NECESSARY (1 / 4WEEKS)
     Dates: start: 20130313
  13. OMEPRAZOLE [Concomitant]
     Indication: PROPHYLAXIS
     Dosage: 10 MG, 1X/DAY
     Route: 048
     Dates: start: 20130605
  14. OMEPRAZOLE [Concomitant]
     Dosage: 20 MG, 1X/DAY
     Dates: start: 20130719
  15. OMEPRAZOLE [Concomitant]
     Route: 042
     Dates: start: 20130719
  16. PREGABALIN [Concomitant]
     Indication: NEURALGIA
     Dosage: 25 MG, 2X/DAY
     Route: 048
     Dates: start: 20130717
  17. PREGABALIN [Concomitant]
     Route: 048
     Dates: start: 20130719
  18. ZOPICLONE [Concomitant]
     Indication: INSOMNIA
     Dosage: 2-3 AT NIGHT
     Route: 048
     Dates: start: 20130408

REACTIONS (5)
  - Colitis [Not Recovered/Not Resolved]
  - Gastric ulcer [Recovering/Resolving]
  - Rectal haemorrhage [Recovered/Resolved with Sequelae]
  - Vomiting [Unknown]
  - Diarrhoea [Recovered/Resolved with Sequelae]
